FAERS Safety Report 24153987 (Version 1)
Quarter: 2024Q3

REPORT INFORMATION
  Report Type: Spontaneous
  Country: FR (occurrence: FR)
  Receive Date: 20240730
  Receipt Date: 20240730
  Transmission Date: 20241017
  Serious: Yes (Hospitalization)
  Sender: PURDUE
  Company Number: FR-PURDUE-USA-2024-0311040

PATIENT
  Age: 46 Year
  Sex: Female

DRUGS (2)
  1. OXYCODONE HYDROCHLORIDE [Suspect]
     Active Substance: OXYCODONE HYDROCHLORIDE
     Indication: Product used for unknown indication
     Dosage: 20MG LP MORNING AND EVENING + 20MG LI 3 TIMES A DAY (IN MARCH 2023)
     Route: 048
     Dates: start: 2017, end: 20230317
  2. ALPRAZOLAM [Suspect]
     Active Substance: ALPRAZOLAM
     Indication: Product used for unknown indication
     Dosage: ALPRAZOLAM 0.25MG: 2 CPS IN THE EVENING
     Route: 048
     Dates: end: 20230322

REACTIONS (4)
  - Drug dependence [Recovered/Resolved]
  - Insomnia [Recovering/Resolving]
  - Drug withdrawal syndrome [Recovered/Resolved]
  - Drug dependence [Recovered/Resolved]

NARRATIVE: CASE EVENT DATE: 20170101
